FAERS Safety Report 9708100 (Version 1)
Quarter: 2013Q4

REPORT INFORMATION
  Report Type: Report from Study
  Country: RU (occurrence: RU)
  Receive Date: 20131125
  Receipt Date: 20131125
  Transmission Date: 20140711
  Serious: Yes (Other)
  Sender: FDA-Public Use
  Company Number: RU-SA-2013SA117940

PATIENT
  Age: 57 Year
  Sex: Female

DRUGS (4)
  1. PLAVIX [Suspect]
     Indication: THROMBOSIS PROPHYLAXIS
     Route: 048
     Dates: start: 201212, end: 201309
  2. PREDUCTAL [Concomitant]
     Indication: ANGINA PECTORIS
     Route: 048
  3. PRESTARIUM [Concomitant]
     Indication: HYPERTENSION
     Route: 048
  4. GLYCYRRHIZIC ACID [Concomitant]
     Indication: PROPHYLAXIS
     Dosage: WITH COURSE
     Route: 048

REACTIONS (2)
  - Erosive oesophagitis [Recovering/Resolving]
  - Chest pain [Recovering/Resolving]
